FAERS Safety Report 6831265-4 (Version None)
Quarter: 2010Q3

REPORT INFORMATION
  Report Type: 
  Country: None (occurrence: None)
  Receive Date: 20100709
  Receipt Date: 20100709
  Transmission Date: 20110219
  Serious: Yes (Hospitalization, Other)
  Sender: FDA-Public Use
  Company Number: None

PATIENT
  Age: 34 Year
  Sex: Female
  Weight: 74.8435 kg

DRUGS (2)
  1. PRISTIQ [Suspect]
     Indication: CONCUSSION
     Dates: start: 20100519, end: 20100524
  2. PRISTIQ [Suspect]
     Indication: DEPRESSION
     Dates: start: 20100519, end: 20100524

REACTIONS (5)
  - CRYING [None]
  - DELUSION [None]
  - DISABILITY [None]
  - MENTAL DISORDER [None]
  - SUICIDAL IDEATION [None]
